FAERS Safety Report 18696383 (Version 1)
Quarter: 2021Q1

REPORT INFORMATION
  Report Type: Other
  Country: US (occurrence: US)
  Receive Date: 20210104
  Receipt Date: 20210104
  Transmission Date: 20210419
  Serious: No
  Sender: FDA-Public Use
  Company Number: US-ROCHE-2489429

PATIENT
  Age: 2 Year
  Sex: Male

DRUGS (2)
  1. BIVALIRUDIN. [Concomitant]
     Active Substance: BIVALIRUDIN
     Dosage: 0.3 MG/KG/H
  2. ACTILYSE [Suspect]
     Active Substance: ALTEPLASE
     Indication: THROMBOLYSIS
     Dosage: 0.3 MG/KG/HOUR
     Route: 042

REACTIONS (3)
  - Intentional product use issue [Unknown]
  - No adverse event [Unknown]
  - Off label use [Unknown]
